FAERS Safety Report 9514631 (Version 1)
Quarter: 2013Q1

REPORT INFORMATION
  Report Type: Spontaneous
  Country: US (occurrence: None)
  Receive Date: 20130305
  Receipt Date: 20130305
  Transmission Date: 20140127
  Serious: Yes (Other)
  Sender: FDA-Public Use
  Company Number: 163-21880-12112117

PATIENT
  Age: 65 Year
  Sex: Male

DRUGS (3)
  1. ASPIRIN (ACETYLSALICYLIC ACID) [Concomitant]
  2. VITAMIN B12 (CYANOCOBALAMIN) [Concomitant]
  3. REVLIMID (LENALIDOMIDE) [Suspect]
     Route: 048
     Dates: start: 20120724

REACTIONS (1)
  - Contusion [None]
